FAERS Safety Report 6906015-3 (Version None)
Quarter: 2010Q3

REPORT INFORMATION
  Report Type: 
  Country: None (occurrence: None)
  Receive Date: 20100804
  Receipt Date: 20100722
  Transmission Date: 20110219
  Serious: Yes (Hospitalization, Other)
  Sender: FDA-Public Use
  Company Number: PHHY2010JP43197

PATIENT
  Sex: Female
  Weight: 59 kg

DRUGS (19)
  1. DIOVAN [Suspect]
     Indication: HYPERTENSION
     Dosage: 160 MG DAILY
     Route: 048
     Dates: start: 20080731, end: 20100417
  2. FLUITRAN [Concomitant]
     Indication: HYPERTENSION
     Dosage: 2 MG
     Route: 048
     Dates: start: 20080621, end: 20100417
  3. LASIX [Concomitant]
     Indication: HYPERTENSION
     Dosage: 20 MG
     Route: 048
     Dates: start: 20080418
  4. LASIX [Concomitant]
     Dosage: 40 MG
     Route: 048
     Dates: end: 20100417
  5. AZELASTINE HCL [Concomitant]
     Indication: HYPERTENSION
     Dosage: 16 MG
     Route: 048
     Dates: start: 20080222, end: 20100417
  6. ACECOL [Concomitant]
     Indication: HYPERTENSION
     Dosage: 2 MG
     Route: 048
     Dates: start: 20091030, end: 20100417
  7. LENDORMIN [Concomitant]
     Dosage: 0.25 MG
     Route: 048
     Dates: start: 20080515, end: 20080828
  8. MILLIS [Concomitant]
     Dosage: 2 DF
     Dates: start: 20071203
  9. HOKUNALIN [Concomitant]
     Dosage: 1 DF
     Dates: start: 20071121
  10. TAKEPRON [Concomitant]
     Dosage: 30 MG
     Route: 048
     Dates: start: 20080731
  11. TAKEPRON [Concomitant]
     Dosage: 15 MG
     Route: 048
     Dates: end: 20100417
  12. NOVORAPID [Concomitant]
     Dosage: 14 IU
     Route: 058
     Dates: start: 20080429, end: 20100414
  13. NOVORAPID [Concomitant]
     Dosage: 16 IU
     Route: 058
     Dates: start: 20080511
  14. NOVORAPID [Concomitant]
     Dosage: 36 IU
     Route: 058
  15. WARFARIN POTASSIUM [Concomitant]
     Dosage: 2 MG
     Route: 048
     Dates: start: 20080616, end: 20081218
  16. ALLOZYM [Concomitant]
     Dosage: 100 MG
     Route: 048
     Dates: start: 20090430, end: 20100417
  17. ONON [Concomitant]
     Dosage: 4 DF
     Route: 048
     Dates: start: 20071124, end: 20100417
  18. LIPITOR [Concomitant]
     Dosage: 10 MG
     Route: 048
     Dates: start: 20090929, end: 20100417
  19. LEVEMIR [Concomitant]
     Dosage: 8 IU
     Dates: start: 20100415

REACTIONS (7)
  - BLOOD PRESSURE DIASTOLIC DECREASED [None]
  - CONDITION AGGRAVATED [None]
  - DIABETIC GANGRENE [None]
  - DIABETIC NEPHROPATHY [None]
  - GLUCOSE URINE PRESENT [None]
  - HYPERGLYCAEMIA [None]
  - SEPSIS [None]
